FAERS Safety Report 13459815 (Version 2)
Quarter: 2017Q2

REPORT INFORMATION
  Report Type: Spontaneous
  Country: US (occurrence: US)
  Receive Date: 20170420
  Receipt Date: 20170518
  Transmission Date: 20170830
  Serious: Yes (Hospitalization)
  Sender: FDA-Public Use
  Company Number: US-TEVA-672512USA

PATIENT
  Age: 46 Year
  Sex: Male

DRUGS (1)
  1. OLANZAPINE. [Suspect]
     Active Substance: OLANZAPINE
     Dosage: INCREASED FROM 5 MG TO 10 MG

REACTIONS (7)
  - Erection increased [Recovering/Resolving]
  - Mental disorder [Unknown]
  - Disturbance in sexual arousal [Recovering/Resolving]
  - Painful erection [Recovering/Resolving]
  - Dry eye [Recovering/Resolving]
  - Anger [Recovering/Resolving]
  - Dry mouth [Recovering/Resolving]

NARRATIVE: CASE EVENT DATE: 201604
